FAERS Safety Report 14103365 (Version 1)
Quarter: 2017Q4

REPORT INFORMATION
  Report Type: Spontaneous
  Country: GB (occurrence: GB)
  Receive Date: 20171018
  Receipt Date: 20171018
  Transmission Date: 20180321
  Serious: Yes (Other)
  Sender: FDA-Public Use
  Company Number: GB-MYLANLABS-2017M1063971

PATIENT
  Age: 36 Year
  Sex: Female
  Weight: 62 kg

DRUGS (4)
  1. CITALOPRAM [Suspect]
     Active Substance: CITALOPRAM HYDROBROMIDE
     Indication: PRODUCT USED FOR UNKNOWN INDICATION
     Dates: start: 20170817
  2. FLUOXETINE [Concomitant]
     Active Substance: FLUOXETINE HYDROCHLORIDE
     Indication: AFFECTIVE DISORDER
     Dates: start: 20170831
  3. FEXOFENADINE [Concomitant]
     Active Substance: FEXOFENADINE\FEXOFENADINE HYDROCHLORIDE
     Dates: start: 20170829
  4. IMIPRAMINE [Concomitant]
     Active Substance: IMIPRAMINE
     Dosage: AT NIGHT AS ADVISED
     Dates: start: 20160322, end: 20170817

REACTIONS (2)
  - Oral pain [Recovered/Resolved]
  - Dry mouth [Recovered/Resolved]

NARRATIVE: CASE EVENT DATE: 20170906
